FAERS Safety Report 8264727-6 (Version None)
Quarter: 2012Q2

REPORT INFORMATION
  Report Type: 
  Country: None (occurrence: None)
  Receive Date: 20120406
  Receipt Date: 20120326
  Transmission Date: 20120825
  Serious: Yes (Other)
  Sender: FDA-Public Use
  Company Number: BR-JNJFOC-20120314488

PATIENT
  Age: 17 Year
  Sex: Female

DRUGS (2)
  1. REMICADE [Suspect]
     Indication: CROHN'S DISEASE
     Route: 042
     Dates: start: 20080401, end: 20110501
  2. AZATHIOPRINE [Suspect]
     Indication: CROHN'S DISEASE
     Route: 065
     Dates: start: 20080401, end: 20080701

REACTIONS (3)
  - LEFT VENTRICULAR DYSFUNCTION [None]
  - PHARYNGEAL ABSCESS [None]
  - CROHN'S DISEASE [None]
